FAERS Safety Report 4683978-0 (Version None)
Quarter: 2005Q2

REPORT INFORMATION
  Report Type: 
  Country: None (occurrence: None)
  Receive Date: 20050602
  Receipt Date: 20050120
  Transmission Date: 20051028
  Serious: No
  Sender: FDA-Public Use
  Company Number: USA050188936

PATIENT
  Age: 71 Year
  Sex: Female

DRUGS (7)
  1. CYMBALTA [Suspect]
     Indication: DIABETIC NEUROPATHY
     Dosage: 60 MG
  2. DIGITALIS [Concomitant]
  3. COUMADIN [Concomitant]
  4. GLYBURIDE [Concomitant]
  5. ALLOPURINOL [Concomitant]
  6. BENZYLHYDROCHLOROTHIAZIDE [Concomitant]
  7. VITAMINS NOS [Concomitant]

REACTIONS (2)
  - DYSPNOEA [None]
  - RESTLESSNESS [None]
